FAERS Safety Report 9912521 (Version 2)
Quarter: 2014Q1

REPORT INFORMATION
  Report Type: Spontaneous
  Country: FR (occurrence: FR)
  Receive Date: 20140220
  Receipt Date: 20140220
  Transmission Date: 20141002
  Serious: Yes (Hospitalization)
  Sender: FDA-Public Use
  Company Number: FR-JNJFOC-20130601645

PATIENT
  Age: 50 Year
  Sex: Female

DRUGS (2)
  1. DAKTARIN [Suspect]
     Route: 048
  2. DAKTARIN [Suspect]
     Indication: ORAL FUNGAL INFECTION
     Route: 048

REACTIONS (2)
  - Myocarditis [Recovering/Resolving]
  - Toxic skin eruption [Recovering/Resolving]
